FAERS Safety Report 10038717 (Version 6)
Quarter: 2014Q2

REPORT INFORMATION
  Report Type: Spontaneous
  Country: US (occurrence: US)
  Receive Date: 20140326
  Receipt Date: 20140630
  Transmission Date: 20141212
  Serious: Yes (Hospitalization, Other)
  Sender: FDA-Public Use
  Company Number: US-ACTELION-A-US2014-96274

PATIENT
  Age: 75 Year
  Sex: Male

DRUGS (16)
  1. OPSUMIT [Suspect]
     Indication: PULMONARY ARTERIAL HYPERTENSION
     Dosage: 10 MG, QD
     Route: 048
     Dates: start: 20140131
  2. RIOCIGUAT [Concomitant]
     Dosage: 0.5 MG, UNK
  3. ZYLOPRIM [Concomitant]
     Dosage: 300 MG, UNK
  4. ASA [Concomitant]
     Dosage: 81 MG, UNK
  5. ZYRTEC [Concomitant]
     Dosage: 10 MG, UNK
  6. FEOSOL [Concomitant]
     Dosage: 325 MG, BID
  7. LASIX [Concomitant]
     Dosage: 80 MG, UNK
  8. GLUCOTROL [Concomitant]
     Dosage: 5 MG, UNK
  9. GLUCOSAMINE SULFATE [Concomitant]
     Dosage: 1000 MG, UNK
  10. XALATAN [Concomitant]
     Dosage: 1 DROP, AT BEDTIME
  11. HYZAAR [Concomitant]
     Dosage: 100-12.5 MG DAILY
  12. MULTIVITAMIN [Concomitant]
     Dosage: 1 TAB, QD
  13. PRILOSEC [Concomitant]
     Dosage: 40 MG, UNK
  14. KLOR-CON [Concomitant]
     Dosage: 1 TAB BID
  15. ZOCOR [Concomitant]
     Dosage: 40 MG, QD AT BEDTIME
  16. HYTRIN [Concomitant]
     Dosage: 10 MG, UNK

REACTIONS (15)
  - Cardiac disorder [Unknown]
  - Cardiac pacemaker insertion [Recovering/Resolving]
  - Heart rate decreased [Recovering/Resolving]
  - Tachycardia [Recovered/Resolved]
  - Chest pain [Recovered/Resolved]
  - Palpitations [Recovered/Resolved]
  - Musculoskeletal pain [Recovered/Resolved]
  - Heart rate irregular [Recovered/Resolved]
  - Dyspnoea [Recovered/Resolved]
  - Atrioventricular block first degree [Recovered/Resolved]
  - Atrioventricular block second degree [Recovered/Resolved]
  - Dizziness [Recovered/Resolved]
  - Renal failure [Recovered/Resolved]
  - Peripheral swelling [Unknown]
  - Dyspnoea exertional [Unknown]
